FAERS Safety Report 16840106 (Version 1)
Quarter: 2019Q3

REPORT INFORMATION
  Report Type: Spontaneous
  Country: US (occurrence: US)
  Receive Date: 20190923
  Receipt Date: 20190923
  Transmission Date: 20191005
  Serious: No
  Sender: FDA-Public Use
  Company Number: US-PFIZER INC-2019406422

PATIENT
  Age: 48 Year
  Sex: Female

DRUGS (4)
  1. CALCIUM [Concomitant]
     Active Substance: CALCIUM
     Dosage: UNK (PILL)
  2. OXYCODONE [Concomitant]
     Active Substance: OXYCODONE
     Dosage: UNK UNK, AS NEEDED
  3. IBRANCE [Suspect]
     Active Substance: PALBOCICLIB
     Indication: BREAST CANCER FEMALE
     Dosage: 125 MG, CYCLIC (ONCE DAILY DAYS 1-21EVERY28 DAYS)
     Route: 048
     Dates: start: 201908
  4. ZOFRAN [Concomitant]
     Active Substance: ONDANSETRON HYDROCHLORIDE
     Dosage: UNK UNK, AS NEEDED

REACTIONS (3)
  - Nausea [Unknown]
  - Abdominal pain upper [Unknown]
  - Arthralgia [Unknown]

NARRATIVE: CASE EVENT DATE: 2019
